FAERS Safety Report 6509526-8 (Version None)
Quarter: 2009Q4

REPORT INFORMATION
  Report Type: 
  Country: None (occurrence: None)
  Receive Date: 20091217
  Receipt Date: 20091204
  Transmission Date: 20100525
  Serious: Yes (Other)
  Sender: FDA-Public Use
  Company Number: NL-1180024

PATIENT
  Age: 68 Year
  Sex: Female

DRUGS (2)
  1. NEVANAC [Suspect]
     Indication: CATARACT OPERATION
     Dosage: 1 GTT TID
     Route: 047
     Dates: start: 20091013
  2. TOBRADEX [Suspect]
     Indication: CATARACT OPERATION
     Dosage: 1 GTT QID
     Route: 047
     Dates: end: 20091013

REACTIONS (4)
  - DRY MOUTH [None]
  - FATIGUE [None]
  - HEADACHE [None]
  - TRANSIENT ISCHAEMIC ATTACK [None]
